FAERS Safety Report 9206121 (Version 1)
Quarter: 2013Q1

REPORT INFORMATION
  Report Type: Spontaneous
  Country: US (occurrence: None)
  Receive Date: 20120731
  Receipt Date: 20120731
  Transmission Date: 20140127
  Serious: No
  Sender: FDA-Public Use
  Company Number: US201110003140

PATIENT
  Age: 64 Year
  Sex: Female
  Weight: 146.5 kg

DRUGS (5)
  1. BYETTA (EXENATIDE) PEN, DISPOSABLE [Suspect]
     Indication: TYPE 2 DIABETES MELLITUS
     Route: 058
     Dates: start: 20111002, end: 201110
  2. GLUCOVANCE (GLIBENCLAMIDE, METFORMIN HYDROCHLORIDE) [Concomitant]
  3. METFORMIN (METFORMIN) [Concomitant]
  4. ACTOS/USA/(PIOGLITAZONE HYDROCHLORIDE) [Concomitant]
  5. METFORMIN (METFORMIN) [Concomitant]

REACTIONS (6)
  - Blood glucose increased [None]
  - Sinusitis [None]
  - Hypersensitivity [None]
  - Weight decreased [None]
  - Blood glucose decreased [None]
  - Decreased appetite [None]
